FAERS Safety Report 14139521 (Version 1)
Quarter: 2017Q4

REPORT INFORMATION
  Report Type: Spontaneous
  Country: US (occurrence: US)
  Receive Date: 20171028
  Receipt Date: 20171028
  Transmission Date: 20180321
  Serious: No
  Sender: FDA-Public Use
  Company Number: US-009507513-1710USA006477

PATIENT
  Age: 26 Year
  Sex: Female

DRUGS (1)
  1. NEXPLANON [Suspect]
     Active Substance: ETONOGESTREL
     Dosage: 1 DF, UNK
     Route: 059
     Dates: start: 201405, end: 201706

REACTIONS (4)
  - Device breakage [Recovered/Resolved]
  - No adverse event [Unknown]
  - Incorrect drug administration duration [Unknown]
  - Product quality issue [Unknown]

NARRATIVE: CASE EVENT DATE: 201705
